FAERS Safety Report 7314171-0 (Version None)
Quarter: 2011Q1

REPORT INFORMATION
  Report Type: 
  Country: None (occurrence: None)
  Receive Date: 20110225
  Receipt Date: 20100628
  Transmission Date: 20110831
  Serious: No
  Sender: FDA-Public Use
  Company Number: US-MYLANLABS-2010S1009334

PATIENT
  Age: 16 Year
  Sex: Female
  Weight: 88 kg

DRUGS (8)
  1. AMNESTEEM [Suspect]
     Indication: FOLLICULITIS
     Route: 048
     Dates: start: 20100101, end: 20100421
  2. ORAL CONTRACEPTIVE NOS [Concomitant]
  3. AMNESTEEM [Suspect]
     Indication: ACNE
     Route: 048
     Dates: start: 20100101, end: 20100421
  4. CLARAVIS [Suspect]
     Indication: FOLLICULITIS
     Route: 048
     Dates: start: 20100317, end: 20100101
  5. SOTRET [Suspect]
     Indication: FOLLICULITIS
     Route: 048
     Dates: start: 20100217, end: 20100316
  6. ANALGESICS [Concomitant]
  7. SOTRET [Suspect]
     Indication: ACNE
     Route: 048
     Dates: start: 20100217, end: 20100316
  8. CLARAVIS [Suspect]
     Indication: ACNE
     Route: 048
     Dates: start: 20100317, end: 20100101

REACTIONS (3)
  - CRYING [None]
  - MOOD SWINGS [None]
  - DEPRESSED MOOD [None]
